FAERS Safety Report 26026179 (Version 1)
Quarter: 2025Q4

REPORT INFORMATION
  Report Type: Spontaneous
  Country: US (occurrence: None)
  Receive Date: 20251110
  Receipt Date: 20251110
  Transmission Date: 20260117
  Serious: Yes (Other)
  Sender: FDA-CTU
  Company Number: None

PATIENT
  Sex: Female

DRUGS (3)
  1. CYANOCOBALAMIN\TOPIRAMATE [Suspect]
     Active Substance: CYANOCOBALAMIN\TOPIRAMATE
     Indication: Weight decreased
     Dosage: TWICE A DAY ORAL
     Route: 048
     Dates: end: 20251108
  2. BUPROPION [Suspect]
     Active Substance: BUPROPION
  3. METFORMIN [Suspect]
     Active Substance: METFORMIN HYDROCHLORIDE

REACTIONS (3)
  - Dizziness [None]
  - Hypertension [None]
  - Headache [None]
